FAERS Safety Report 24067313 (Version 1)
Quarter: 2024Q3

REPORT INFORMATION
  Report Type: Spontaneous
  Country: US (occurrence: US)
  Receive Date: 20240709
  Receipt Date: 20240709
  Transmission Date: 20241017
  Serious: No
  Sender: AMARIN
  Company Number: US-Amarin Pharma  Inc-2024AMR000217

PATIENT
  Age: 61 Year
  Sex: Female

DRUGS (1)
  1. VASCEPA [Suspect]
     Active Substance: ICOSAPENT ETHYL
     Indication: Hyperlipidaemia

REACTIONS (4)
  - Intentional underdose [Unknown]
  - Expired product administered [Unknown]
  - Product dispensing error [Unknown]
  - Product odour abnormal [Unknown]
